FAERS Safety Report 17006185 (Version 1)
Quarter: 2019Q4

REPORT INFORMATION
  Report Type: Spontaneous
  Country: US (occurrence: US)
  Receive Date: 20191107
  Receipt Date: 20191107
  Transmission Date: 20200122
  Serious: No
  Sender: FDA-Public Use
  Company Number: US-TEVA-2019-US-1132453

PATIENT
  Sex: Female

DRUGS (2)
  1. TRAZODONE HYDROCHLORIDE TABLETS [Suspect]
     Active Substance: TRAZODONE HYDROCHLORIDE
     Dosage: BED TIME
     Route: 065
     Dates: start: 20191028, end: 20191029
  2. TRAZODONE HYDROCHLORIDE TABLETS [Suspect]
     Active Substance: TRAZODONE HYDROCHLORIDE
     Indication: INSOMNIA
     Dosage: BED TIME
     Route: 065
     Dates: start: 201908, end: 20191021

REACTIONS (6)
  - Tongue discolouration [Unknown]
  - Dry mouth [Unknown]
  - Tongue discomfort [Unknown]
  - Oral discomfort [Unknown]
  - Agitation [Unknown]
  - Insomnia [Unknown]

NARRATIVE: CASE EVENT DATE: 2019
